FAERS Safety Report 16211428 (Version 2)
Quarter: 2019Q2

REPORT INFORMATION
  Report Type: Spontaneous
  Country: BR (occurrence: BR)
  Receive Date: 20190418
  Receipt Date: 20190614
  Transmission Date: 20190711
  Serious: Yes (Other)
  Sender: FDA-Public Use
  Company Number: BR-SA-2019SA102165

PATIENT
  Age: 33 Year
  Sex: Female
  Weight: 50 kg

DRUGS (7)
  1. ARAVA [Suspect]
     Active Substance: LEFLUNOMIDE
     Indication: LUPUS-LIKE SYNDROME
     Dosage: 1 DF, QD, 1 TABLET AFTER BREAKFAST
     Route: 048
     Dates: start: 201711, end: 20190331
  2. ARAVA [Suspect]
     Active Substance: LEFLUNOMIDE
     Indication: RHEUMATOID ARTHRITIS
     Dosage: 1 DF, QD, 1 TABLET AFTER BREAKFAST
     Route: 048
  3. REUQUINOL [Concomitant]
     Active Substance: HYDROXYCHLOROQUINE SULFATE
     Indication: LUPUS-LIKE SYNDROME
     Dosage: UNK
     Route: 048
     Dates: start: 201711
  4. PURAN [Concomitant]
     Active Substance: LEVOTHYROXINE SODIUM
     Indication: HYPOTHYROIDISM
     Dosage: BEFORE BREAKFAST
     Route: 048
     Dates: start: 201506
  5. TECNOMET [METHOTREXATE] [Concomitant]
     Active Substance: METHOTREXATE
     Indication: LUPUS-LIKE SYNDROME
     Dosage: 4 DF, 4 TABLETS ON SATURDAYS
     Route: 048
     Dates: start: 201711
  6. TECNOMET [METHOTREXATE] [Concomitant]
     Active Substance: METHOTREXATE
     Indication: RHEUMATOID ARTHRITIS
  7. FOLIC ACID. [Concomitant]
     Active Substance: FOLIC ACID
     Indication: LIVER DISORDER
     Dosage: UNK, ON SUNDAYS
     Route: 048
     Dates: start: 201711

REACTIONS (5)
  - Drug dependence [Unknown]
  - Sensitive skin [Recovered/Resolved]
  - Asthenia [Recovered/Resolved]
  - Pain [Recovered/Resolved]
  - Product use issue [Unknown]

NARRATIVE: CASE EVENT DATE: 20190407
